FAERS Safety Report 19898960 (Version 1)
Quarter: 2021Q3

REPORT INFORMATION
  Report Type: Spontaneous
  Country: US (occurrence: US)
  Receive Date: 20210929
  Receipt Date: 20210929
  Transmission Date: 20211014
  Serious: No
  Sender: FDA-Public Use
  Company Number: US-TEVA-2021-US-1950247

PATIENT

DRUGS (1)
  1. AJOVY [Suspect]
     Active Substance: FREMANEZUMAB-VFRM
     Dosage: AUOTINJECTOR 225MG/1.5ML
     Route: 065

REACTIONS (3)
  - Injection site pain [Unknown]
  - Device malfunction [Unknown]
  - Device use error [Unknown]
